FAERS Safety Report 14304189 (Version 1)
Quarter: 2017Q4

REPORT INFORMATION
  Report Type: Spontaneous
  Country: US (occurrence: US)
  Receive Date: 20171219
  Receipt Date: 20171219
  Transmission Date: 20180321
  Serious: Yes (Other)
  Sender: FDA-Public Use
  Company Number: US-OTSUKA-J20040632

PATIENT
  Age: 16 Year
  Sex: Female
  Weight: 72.56 kg

DRUGS (1)
  1. ABILIFY [Suspect]
     Active Substance: ARIPIPRAZOLE
     Indication: ATTENTION DEFICIT/HYPERACTIVITY DISORDER
     Dosage: 10 MG, UNK
     Route: 048
     Dates: start: 20040309, end: 20040309

REACTIONS (7)
  - Medication error [Recovered/Resolved]
  - Mydriasis [Unknown]
  - Pallor [Unknown]
  - Depression [Unknown]
  - Accidental exposure to product [Recovered/Resolved]
  - Mania [Unknown]
  - Stupor [Unknown]

NARRATIVE: CASE EVENT DATE: 20040309
